FAERS Safety Report 7621139-3 (Version None)
Quarter: 2011Q3

REPORT INFORMATION
  Report Type: 
  Country: None (occurrence: None)
  Receive Date: 20110719
  Receipt Date: 20110707
  Transmission Date: 20111222
  Serious: Yes (Hospitalization)
  Sender: FDA-Public Use
  Company Number: PHHO2011GR11667

PATIENT
  Sex: Male
  Weight: 105 kg

DRUGS (7)
  1. BLINDED NO TREATMENT RECEIVED [Suspect]
     Indication: CHRONIC OBSTRUCTIVE PULMONARY DISEASE
     Dosage: NO TREATMENT
  2. BLINDED QVA149 [Suspect]
     Indication: CHRONIC OBSTRUCTIVE PULMONARY DISEASE
     Dosage: NO TREATMENT
  3. BLINDED TIOTROPIUM [Suspect]
     Indication: CHRONIC OBSTRUCTIVE PULMONARY DISEASE
     Dosage: NO TREATMENT
  4. BLINDED NVA237 [Suspect]
     Indication: CHRONIC OBSTRUCTIVE PULMONARY DISEASE
     Dosage: NO TREATMENT
  5. COMPARATOR TIOTROPIUM [Suspect]
     Indication: CHRONIC OBSTRUCTIVE PULMONARY DISEASE
     Dosage: 18 UG, QD
     Dates: start: 20110215, end: 20110702
  6. LOPRESSOR [Concomitant]
     Indication: ATRIAL FIBRILLATION
     Dosage: 100 MG, UNK
     Route: 048
     Dates: start: 20100121
  7. SINTROM [Concomitant]
     Indication: ATRIAL FIBRILLATION
     Dosage: 4 MG, UNK
     Route: 048
     Dates: start: 20100121

REACTIONS (1)
  - PNEUMONIA [None]
